FAERS Safety Report 4921183-0 (Version None)
Quarter: 2006Q1

REPORT INFORMATION
  Report Type: 
  Country: None (occurrence: None)
  Receive Date: 20060217
  Receipt Date: 20060131
  Transmission Date: 20060701
  Serious: Yes (Death, Life-Threatening)
  Sender: FDA-Public Use
  Company Number: 2005-01312

PATIENT
  Age: 22 Year
  Sex: Female

DRUGS (5)
  1. VELCADE [Suspect]
     Indication: HODGKIN'S DISEASE
     Dosage: 2.10 MG, 2/WEEK, INTRAVENOUS; SEE IMAGE
     Route: 042
     Dates: start: 20050520, end: 20050613
  2. VELCADE [Suspect]
     Indication: HODGKIN'S DISEASE
     Dosage: 2.10 MG, 2/WEEK, INTRAVENOUS; SEE IMAGE
     Route: 042
     Dates: start: 20050614, end: 20050614
  3. DEXAVEN (DEXAMETHASONE SODIUM PHOSPHATE) [Concomitant]
  4. ULFAMID (FAMOTIDINE) TABLET [Concomitant]
  5. VANCOMYCIN [Concomitant]

REACTIONS (9)
  - ACUTE RESPIRATORY FAILURE [None]
  - APNOEA [None]
  - COMA [None]
  - CYTOMEGALOVIRUS INFECTION [None]
  - DISEASE PROGRESSION [None]
  - HAEMOGLOBIN DECREASED [None]
  - LEUKOPENIA [None]
  - LUNG INFILTRATION [None]
  - THROMBOCYTOPENIA [None]
